FAERS Safety Report 8902713 (Version 2)
Quarter: 2012Q4

REPORT INFORMATION
  Report Type: 
  Country: AU (occurrence: AU)
  Receive Date: 20121112
  Receipt Date: 20121127
  Transmission Date: 20130627
  Serious: Yes (Other)
  Sender: FDA-Public Use
  Company Number: PHHY2012AU103381

PATIENT
  Age: 66 Year
  Sex: Female
  Weight: 75 kg

DRUGS (1)
  1. GILENYA [Suspect]
     Dosage: UNK
     Dates: start: 201110

REACTIONS (3)
  - Cataract [Recovered/Resolved]
  - Macular oedema [Recovered/Resolved]
  - Visual impairment [Recovered/Resolved]
